FAERS Safety Report 8402730-3 (Version None)
Quarter: 2012Q2

REPORT INFORMATION
  Report Type: 
  Country: None (occurrence: None)
  Receive Date: 20120601
  Receipt Date: 20120521
  Transmission Date: 20120825
  Serious: Yes (Death, Hospitalization)
  Sender: FDA-Public Use
  Company Number: US-ROCHE-1057206

PATIENT
  Sex: Female
  Weight: 49.2 kg

DRUGS (12)
  1. PROCHLORPERAZINE [Concomitant]
  2. AMOXICILLIN [Concomitant]
  3. CARBOPLATIN [Suspect]
     Dosage: 6 AUC
     Route: 042
     Dates: start: 20120518
  4. ONDANSETRON [Concomitant]
  5. HYDROCODONE BITARTRATE + ACETAMINOPHEN [Concomitant]
  6. XELODA [Suspect]
     Indication: GASTRIC CANCER
     Dosage: ON DAY 1-14 OF EVERY 21 DAY CYCLE
     Dates: start: 20101220
  7. PANTOPRAZOLE [Concomitant]
  8. AVASTIN [Suspect]
     Indication: GASTRIC CANCER
     Route: 042
     Dates: start: 20120323, end: 20120520
  9. DOCUSATE [Concomitant]
  10. LORAZEPAM [Concomitant]
     Dosage: 0.5 TO 1 MG EVERY 4 HOURS
     Route: 042
  11. CARBOPLATIN [Suspect]
     Indication: GASTRIC CANCER
     Dosage: 6 AUC
     Dates: start: 20101125
  12. CLARITHROMYCIN [Concomitant]

REACTIONS (4)
  - PLEURAL EFFUSION [None]
  - INTESTINAL PERFORATION [None]
  - PANCREATITIS [None]
  - ABDOMINAL PAIN [None]
